FAERS Safety Report 10986419 (Version 1)
Quarter: 2015Q2

REPORT INFORMATION
  Report Type: Spontaneous
  Country: US (occurrence: None)
  Receive Date: 20150403
  Receipt Date: 20150403
  Transmission Date: 20150821
  Serious: Yes (Other)
  Sender: FDA-Public Use
  Company Number: None

PATIENT
  Age: 39 Year
  Sex: Female
  Weight: 125.19 kg

DRUGS (6)
  1. FENUGREEK [Concomitant]
  2. FISH OIL [Concomitant]
     Active Substance: FISH OIL
  3. CALCIUM [Concomitant]
     Active Substance: CALCIUM
  4. NEXPLANON [Suspect]
     Active Substance: ETONOGESTREL
     Dates: start: 20140501
  5. PRENTAL VITAMINS [Concomitant]
  6. NEXPLANON [Concomitant]
     Active Substance: ETONOGESTREL

REACTIONS (3)
  - Vulvovaginal dryness [None]
  - Libido decreased [None]
  - Implant site pain [None]

NARRATIVE: CASE EVENT DATE: 20150401
